FAERS Safety Report 20830573 (Version 1)
Quarter: 2022Q2

REPORT INFORMATION
  Report Type: Spontaneous
  Country: US (occurrence: US)
  Receive Date: 20220514
  Receipt Date: 20220514
  Transmission Date: 20220721
  Serious: Yes (Other)
  Sender: FDA-Public Use
  Company Number: US-BAXTER-2022BAX009657

PATIENT
  Age: 67 Year
  Sex: Male

DRUGS (48)
  1. CYCLOPHOSPHAMIDE [Suspect]
     Active Substance: CYCLOPHOSPHAMIDE
     Indication: Plasma cell myeloma
     Dosage: UNK, CYCLE 1, DAY 1, DAY 8 AND DAY15 WITH DPD REGIMEN
     Route: 065
     Dates: start: 20190209
  2. CYCLOPHOSPHAMIDE [Suspect]
     Active Substance: CYCLOPHOSPHAMIDE
     Dosage: 300 MG/M2, CYCLE 2, DAY 1, DAY 8 AND DAY15 WITH DPD REGIMEN
     Route: 065
     Dates: start: 20201214
  3. CYCLOPHOSPHAMIDE [Suspect]
     Active Substance: CYCLOPHOSPHAMIDE
     Dosage: UNK, CYCLE 3 DAY 1, 8 AND 15 WITH DPD REGIMEN
     Route: 065
     Dates: start: 202108
  4. CYCLOPHOSPHAMIDE [Suspect]
     Active Substance: CYCLOPHOSPHAMIDE
     Dosage: UNK, CYCLE 4, DAY 1,8,15 WITH DPD
     Route: 065
     Dates: start: 20210921
  5. DARATUMUMAB [Suspect]
     Active Substance: DARATUMUMAB
     Indication: Plasma cell myeloma
     Dosage: UNK,CYCLE 1, DPD REGIMEN
     Route: 065
     Dates: start: 20191106
  6. DARATUMUMAB [Suspect]
     Active Substance: DARATUMUMAB
     Indication: Disease progression
     Dosage: UNK, CYCLICAL, CYCLE 2 DAY 8, DPD REGIMEN
     Route: 065
     Dates: start: 20220919
  7. DARATUMUMAB [Suspect]
     Active Substance: DARATUMUMAB
     Dosage: UNK, CYCLICAL, CYCLE 3
     Route: 065
     Dates: start: 20201214
  8. DARATUMUMAB [Suspect]
     Active Substance: DARATUMUMAB
     Dosage: UNK, CYCLICAL, CYCLE 4, DPD REGIMEN WITH CYCLOPHOSPHAMIDE
     Dates: start: 202108
  9. DARATUMUMAB [Suspect]
     Active Substance: DARATUMUMAB
     Dosage: UNK, CYCLICAL, CYCLE 5
     Route: 065
     Dates: start: 20210920
  10. POMALIDOMIDE [Suspect]
     Active Substance: POMALIDOMIDE
     Indication: Plasma cell myeloma
     Dosage: UNK, CYCLE 1, DPD REGIMEN
     Route: 065
     Dates: start: 20191106
  11. POMALIDOMIDE [Suspect]
     Active Substance: POMALIDOMIDE
     Indication: Disease progression
     Dosage: UNK, CYCLICAL, CYCLE 2 DAY 8, DPD REGIMEN WITH CYCLOPHOSPHAMIDE
     Route: 065
     Dates: start: 20190209
  12. POMALIDOMIDE [Suspect]
     Active Substance: POMALIDOMIDE
     Dosage: UNK, CYCLICAL, CYCLE 3, DPD REGIMEN WITH CYCLOPHOSPHAMIDE
     Route: 065
     Dates: start: 20201214
  13. POMALIDOMIDE [Suspect]
     Active Substance: POMALIDOMIDE
     Dosage: UNK, CYCLICAL, CYCLE 4, DPD REGIMEN WITH CYCLOPHOSPHAMIDE
     Route: 065
     Dates: start: 202108
  14. POMALIDOMIDE [Suspect]
     Active Substance: POMALIDOMIDE
     Dosage: UNK, CYCLICAL, CYCLE 4, DPD REGIMEN WITH CYCLOPHOSPHAMIDE
     Route: 065
     Dates: start: 20210920
  15. VENETOCLAX [Suspect]
     Active Substance: VENETOCLAX
     Indication: Disease progression
     Dosage: UNK, VENETOCLAX WITH DECADRON
     Route: 065
     Dates: start: 20211013
  16. CARFILZOMIB [Suspect]
     Active Substance: CARFILZOMIB
     Indication: Plasma cell myeloma
     Dosage: UNK, CYCLE 1, CARFILZOMIB, REVLIMID WITH DECADRON
     Route: 065
     Dates: start: 20170518
  17. CARFILZOMIB [Suspect]
     Active Substance: CARFILZOMIB
     Indication: Disease progression
     Dosage: UNK, CYCLICAL, CYCLE 2, CARFILZOMIB, REVLIMID WITH DECADRONWITH
     Route: 065
     Dates: start: 2017
  18. CARFILZOMIB [Suspect]
     Active Substance: CARFILZOMIB
     Dosage: UNK, CYCLICAL, CYCLE 3 CARFILZOMIB WITH DECADRON
     Route: 065
     Dates: start: 20211110
  19. CARFILZOMIB [Suspect]
     Active Substance: CARFILZOMIB
     Dosage: UNK, CYCLICAL, CYCLE 4
     Route: 065
  20. CARFILZOMIB [Suspect]
     Active Substance: CARFILZOMIB
     Dosage: UNK, TRILLIUM TRIAL, CYCLE 1 DAY 1
     Route: 065
     Dates: start: 20211110
  21. CARFILZOMIB [Suspect]
     Active Substance: CARFILZOMIB
     Dosage: UNK, UNK, TRILLIUM TRIAL, CYCLE 1 DAY 15
     Route: 065
     Dates: start: 20211124
  22. CARFILZOMIB [Suspect]
     Active Substance: CARFILZOMIB
     Dosage: UNK, UNK, TRILLIUM TRIAL, CYCLE 2
     Route: 065
     Dates: start: 20211206
  23. CARFILZOMIB [Suspect]
     Active Substance: CARFILZOMIB
     Dosage: UNK, UNK, TRILLIUM TRIAL, CYCLE 3, DAY 8
     Dates: start: 20220110
  24. CARFILZOMIB [Suspect]
     Active Substance: CARFILZOMIB
     Dosage: UNK, DOSE REDUCED
     Route: 065
     Dates: start: 20210131
  25. CARFILZOMIB [Suspect]
     Active Substance: CARFILZOMIB
     Dosage: UNK, TRILIUM STUDY
     Route: 065
     Dates: start: 20220228
  26. CARFILZOMIB [Suspect]
     Active Substance: CARFILZOMIB
     Dosage: UNK, TRILIUM STUDY, C1D22
     Route: 065
     Dates: start: 20220321
  27. DEXAMETHASONE [Suspect]
     Active Substance: DEXAMETHASONE
     Indication: Plasma cell myeloma
     Dosage: UNK,CYCLICAL, CYCLE 1, CARFILZOMIB, REVLIMID, AND DEXAMETHASONE REGIMEN
     Dates: start: 20170518
  28. DEXAMETHASONE [Suspect]
     Active Substance: DEXAMETHASONE
     Indication: Disease progression
     Dosage: UNK,CYCLICAL, CYCLE 2, CARFILZOMIB, REVLIMID, AND DEXAMETHASONE REGIMEN
     Route: 065
     Dates: start: 2017
  29. DEXAMETHASONE [Suspect]
     Active Substance: DEXAMETHASONE
     Dosage: UNK,CYCLICAL, CYCLE 3, CARFILZOMIB, REVLIMID, DECADRON
     Route: 065
     Dates: start: 20201214
  30. DEXAMETHASONE [Suspect]
     Active Substance: DEXAMETHASONE
     Dosage: UNK,CYCLICAL, MAINTENANCE THERAPY
     Route: 065
     Dates: start: 201711
  31. DEXAMETHASONE [Suspect]
     Active Substance: DEXAMETHASONE
     Dosage: 5 MG,CYCLICAL, DOSE REDUCED
     Route: 065
     Dates: start: 201805
  32. DEXAMETHASONE [Suspect]
     Active Substance: DEXAMETHASONE
     Dosage: 4 MG, CYCLICAL
     Route: 065
     Dates: start: 201908
  33. DEXAMETHASONE [Suspect]
     Active Substance: DEXAMETHASONE
     Dosage: UNK, CYCLICAL, CYCLE 1 DPD REGIMEN
     Route: 065
     Dates: start: 20191106
  34. DEXAMETHASONE [Suspect]
     Active Substance: DEXAMETHASONE
     Dosage: UNK,CYCLICAL, CYCLE 2 DAY 8, DPCD REGIMEN
     Route: 065
     Dates: start: 20191209
  35. DEXAMETHASONE [Suspect]
     Active Substance: DEXAMETHASONE
     Dosage: UNK UNK, CYCLICAL, CYCLE 3, DPCD
     Route: 065
     Dates: start: 20201214
  36. DEXAMETHASONE [Suspect]
     Active Substance: DEXAMETHASONE
     Dosage: UNK, CYCLE 4, DPCD REGIMEN
     Route: 065
     Dates: start: 20210920
  37. DEXAMETHASONE [Suspect]
     Active Substance: DEXAMETHASONE
     Dosage: UNK, CYCLICAL, CYCLE 1 VENTEOCLAX WITH DEXAMETHASONE
     Route: 065
     Dates: start: 20211013
  38. DEXAMETHASONE [Suspect]
     Active Substance: DEXAMETHASONE
     Dosage: UNK, CYCLICAL, VENETOCLAX WITH DEXAMETHASONE
     Route: 065
     Dates: start: 20211101
  39. DEXAMETHASONE [Suspect]
     Active Substance: DEXAMETHASONE
     Dosage: UNK, TRILLIUM TRIAL, CARFILZOMIB WITH DEXAMETHASONE, CYCLE 1 DAY 1
     Route: 065
     Dates: start: 20211110
  40. LENALIDOMIDE [Suspect]
     Active Substance: LENALIDOMIDE
     Dosage: UNK, CYCLE 1, CARFILZOMIB, REVLIMID AND DECADRON
     Route: 065
     Dates: start: 20170518
  41. LENALIDOMIDE [Suspect]
     Active Substance: LENALIDOMIDE
     Dosage: UNK, CYCLICAL, MAINTENANCE THERAPY
     Route: 065
     Dates: start: 201711
  42. LENALIDOMIDE [Suspect]
     Active Substance: LENALIDOMIDE
     Dosage: 5 MG, CYCLICAL, DAY 1-21, DOSE REDUCED
     Route: 065
     Dates: start: 201805
  43. LENALIDOMIDE [Suspect]
     Active Substance: LENALIDOMIDE
     Dosage: UNK, CYCLE 1 OF REVLIMID AND DECADRON
     Route: 065
     Dates: start: 201908
  44. CETIRIZINE HYDROCHLORIDE [Concomitant]
     Active Substance: CETIRIZINE HYDROCHLORIDE
     Indication: Product used for unknown indication
     Dosage: QD, 1 TABLET
     Route: 048
  45. FUROSEMIDE [Concomitant]
     Active Substance: FUROSEMIDE
     Indication: Product used for unknown indication
     Dosage: 40 MG, DAILY, 2 TABLETS
     Route: 048
  46. HYDROCORTISONE [Concomitant]
     Active Substance: HYDROCORTISONE
     Indication: Product used for unknown indication
     Dosage: UNK UNK, QID, TOPICAL CREAM, 2.5%
     Route: 061
  47. LIDOCAINE [Concomitant]
     Active Substance: LIDOCAINE
     Indication: Product used for unknown indication
     Dosage: 5%, 12H/DAY, 2 PATCH
     Route: 061
  48. MELPHALAN [Suspect]
     Active Substance: MELPHALAN
     Indication: Plasma cell myeloma
     Dosage: 200 MG/M2
     Dates: start: 20170817

REACTIONS (15)
  - Fatigue [Unknown]
  - Arthralgia [Not Recovered/Not Resolved]
  - Arthralgia [Not Recovered/Not Resolved]
  - Rash maculo-papular [Recovering/Resolving]
  - Disease progression [Unknown]
  - Keratitis viral [Recovering/Resolving]
  - Somnolence [Unknown]
  - Groin pain [Unknown]
  - Osteoarthritis [Not Recovered/Not Resolved]
  - Herpes zoster [Unknown]
  - Musculoskeletal chest pain [Recovered/Resolved]
  - Psychophysiologic insomnia [Unknown]
  - Prostatic specific antigen increased [Unknown]
  - Pruritus [Unknown]
  - Lethargy [Unknown]

NARRATIVE: CASE EVENT DATE: 20190101
